FAERS Safety Report 7190018-0 (Version None)
Quarter: 2010Q4

REPORT INFORMATION
  Report Type: 
  Country: None (occurrence: None)
  Receive Date: 20101213
  Receipt Date: 20101208
  Transmission Date: 20110411
  Serious: Yes (Other)
  Sender: FDA-Public Use
  Company Number: 2010006350

PATIENT
  Age: 44 Year
  Sex: Male
  Weight: 90.7194 kg

DRUGS (1)
  1. FENTANYL CITRATE [Suspect]
     Indication: NECK PAIN
     Dosage: 3600 MCG (1200 MCG, 3 IN 1 D), BU
     Route: 002
     Dates: start: 20080101

REACTIONS (2)
  - DENTAL CARIES [None]
  - TOOTH EXTRACTION [None]
